FAERS Safety Report 6031816-6 (Version None)
Quarter: 2008Q4

REPORT INFORMATION
  Report Type: 
  Country: None (occurrence: None)
  Receive Date: 20081224
  Receipt Date: 20080829
  Transmission Date: 20090506
  Serious: No
  Sender: FDA-Public Use
  Company Number: 2008PV036583

PATIENT
  Age: 60 Year
  Sex: Male

DRUGS (5)
  1. SYMLIN [Suspect]
     Indication: TYPE 2 DIABETES MELLITUS
     Dosage: 120 MCG; BID; SC, 60 MCG; BID; SC
     Route: 058
     Dates: start: 20080820, end: 20080827
  2. SYMLIN [Suspect]
     Indication: TYPE 2 DIABETES MELLITUS
     Dosage: 120 MCG; BID; SC, 60 MCG; BID; SC
     Route: 058
     Dates: start: 20080827
  3. NOVOLOG [Concomitant]
  4. METFORMIN [Concomitant]
  5. LANTUS [Concomitant]

REACTIONS (3)
  - BLOOD GLUCOSE INCREASED [None]
  - INJECTION SITE PAIN [None]
  - NAUSEA [None]
